FAERS Safety Report 10779045 (Version 1)
Quarter: 2015Q1

REPORT INFORMATION
  Report Type: Spontaneous
  Country: US (occurrence: None)
  Receive Date: 20150206
  Receipt Date: 20150206
  Transmission Date: 20150721
  Serious: Yes (Other)
  Sender: FDA-Public Use
  Company Number: US-H1401-15-00184

PATIENT
  Age: 79 Year
  Sex: Female
  Weight: 70.31 kg

DRUGS (5)
  1. VITAMIN B12 [Concomitant]
     Active Substance: CYANOCOBALAMIN
  2. AMOXICILLIN (AMOXICILLIN TRIHYDRATE) [Concomitant]
     Active Substance: AMOXICILLIN
  3. VITAMIN C [Concomitant]
     Active Substance: ASCORBIC ACID
  4. VITAMIN B6 [Concomitant]
     Active Substance: PYRIDOXINE HYDROCHLORIDE
  5. AMOXICILLIN ORAL SUSPENSION [Suspect]
     Active Substance: AMOXICILLIN
     Indication: CYSTITIS
     Dosage: 1 TEASPOON ONCE
     Route: 048
     Dates: start: 20150122, end: 20150122

REACTIONS (5)
  - Abdominal discomfort [None]
  - Drug hypersensitivity [None]
  - Gastrooesophageal reflux disease [None]
  - Hypersensitivity [None]
  - Choking [None]

NARRATIVE: CASE EVENT DATE: 20150128
